FAERS Safety Report 11639690 (Version 1)
Quarter: 2015Q4

REPORT INFORMATION
  Report Type: Spontaneous
  Country: US (occurrence: None)
  Receive Date: 20151016
  Receipt Date: 20151016
  Transmission Date: 20160304
  Serious: Yes (Hospitalization)
  Sender: FDA-Public Use
  Company Number: None

PATIENT
  Age: 90 Year
  Sex: Male

DRUGS (12)
  1. METFORMIN [Concomitant]
     Active Substance: METFORMIN HYDROCHLORIDE
  2. KRILL OIL [Concomitant]
     Active Substance: DIETARY SUPPLEMENT
  3. VD3 [Concomitant]
  4. VITAMIN C [Concomitant]
     Active Substance: ASCORBIC ACID
  5. POTASSIUM [Concomitant]
     Active Substance: POTASSIUM
  6. OMEPRAZOLE. [Concomitant]
     Active Substance: OMEPRAZOLE
  7. ZYTIGA [Suspect]
     Active Substance: ABIRATERONE ACETATE
     Indication: PROSTATE CANCER
     Route: 048
     Dates: start: 20150708
  8. LEVOTHRYROXIN [Concomitant]
  9. VITAMIN E [Concomitant]
     Active Substance: .ALPHA.-TOCOPHEROL
  10. BOOMPLX [Concomitant]
  11. COQ10 [Concomitant]
     Active Substance: UBIDECARENONE
  12. GLIPIZIDE. [Concomitant]
     Active Substance: GLIPIZIDE

REACTIONS (8)
  - Myalgia [None]
  - Urinary tract infection [None]
  - Decreased appetite [None]
  - Rib fracture [None]
  - Gastric disorder [None]
  - Hypopnoea [None]
  - Dizziness [None]
  - Dysgeusia [None]

NARRATIVE: CASE EVENT DATE: 201508
